FAERS Safety Report 10223072 (Version 1)
Quarter: 2014Q2

REPORT INFORMATION
  Report Type: Spontaneous
  Country: US (occurrence: US)
  Receive Date: 20140607
  Receipt Date: 20140607
  Transmission Date: 20141212
  Serious: Yes (Other)
  Sender: FDA-Public Use
  Company Number: PHEH2014US011200

PATIENT
  Sex: Male

DRUGS (6)
  1. LOTREL [Suspect]
     Indication: BLOOD PRESSURE ABNORMAL
     Dosage: UNK UKN, UNK
  2. AMLODIPINE BESILATE,BENAZEPRIL HYDROCHLORIDE [Suspect]
     Indication: BLOOD PRESSURE ABNORMAL
  3. VITAMIN D [Suspect]
     Indication: BONE DISORDER
  4. HYDROCHLOROTHIAZIDE [Concomitant]
     Dosage: UNK UKN, UNK
  5. OMEPRAZOLE [Concomitant]
     Dosage: UNK UKN, UNK
  6. EAR DROPS [Concomitant]
     Dosage: UNK UKN, UNK

REACTIONS (7)
  - Benign prostatic hyperplasia [Unknown]
  - Urinary retention [Unknown]
  - Ocular hyperaemia [Unknown]
  - Feeling abnormal [Unknown]
  - Drug intolerance [Unknown]
  - Pain [Unknown]
  - Palpitations [Unknown]
